FAERS Safety Report 18589120 (Version 2)
Quarter: 2021Q1

REPORT INFORMATION
  Report Type: Report from Study
  Country: DE (occurrence: DE)
  Receive Date: 20201208
  Receipt Date: 20210115
  Transmission Date: 20210419
  Serious: Yes (Life-Threatening, Hospitalization)
  Sender: FDA-Public Use
  Company Number: DE-ROCHE-2723268

PATIENT
  Sex: Female
  Weight: 88 kg

DRUGS (8)
  1. PREDNISOLONE. [Suspect]
     Active Substance: PREDNISOLONE
     Indication: POST TRANSPLANT LYMPHOPROLIFERATIVE DISORDER
     Dosage: MOST RECENT DOSE OF PREDNISOLONE (500 MG) WAS ADMINISTERED ON 24/OCT/2020
     Route: 065
     Dates: start: 20200804, end: 20201023
  2. PREDNISOLON [Concomitant]
     Active Substance: PREDNISOLONE
  3. VINCRISTINE [Suspect]
     Active Substance: VINCRISTINE
     Indication: POST TRANSPLANT LYMPHOPROLIFERATIVE DISORDER
     Dosage: MOST RECENT DOSE OF VINCRISTIN (1 MG) WAS ADMINISTERED ON 24/OCT/2020
     Route: 065
     Dates: start: 20200804, end: 20201023
  4. DOXORUBICIN [Suspect]
     Active Substance: DOXORUBICIN
     Indication: POST TRANSPLANT LYMPHOPROLIFERATIVE DISORDER
     Dosage: MOST RECENT DOSE OF ADRIAMYCIN (70 MG) WAS ADMINISTERED ON 24/OCT/2020
     Route: 065
     Dates: start: 20200804, end: 20201023
  5. MYCOPHENOLATE MOFETIL. [Concomitant]
     Active Substance: MYCOPHENOLATE MOFETIL
  6. RITUXIMAB. [Suspect]
     Active Substance: RITUXIMAB
     Indication: POST TRANSPLANT LYMPHOPROLIFERATIVE DISORDER
     Dosage: MOST RECENT DOSE OF RITUXIMAB (1400 MG) WAS ADMINISTERED ON 24/OCT/2020
     Route: 058
     Dates: start: 20200804, end: 20201023
  7. PROGRAF [Concomitant]
     Active Substance: TACROLIMUS
  8. CYCLOPHOSPHAMIDE. [Suspect]
     Active Substance: CYCLOPHOSPHAMIDE
     Indication: POST TRANSPLANT LYMPHOPROLIFERATIVE DISORDER
     Dosage: MOST RECENT DOSE OF CYCLOPHOSPHAMIDE (1054 MG) WAS ADMINISTERED ON 24/OCT/2020
     Route: 065
     Dates: start: 20200804, end: 20201023

REACTIONS (2)
  - Seizure [Unknown]
  - Atrial fibrillation [Unknown]

NARRATIVE: CASE EVENT DATE: 20201125
